FAERS Safety Report 17016833 (Version 1)
Quarter: 2019Q4

REPORT INFORMATION
  Report Type: Spontaneous
  Country: US (occurrence: US)
  Receive Date: 20191111
  Receipt Date: 20191111
  Transmission Date: 20200122
  Serious: No
  Sender: FDA-Public Use
  Company Number: US-MYLANLABS-2019M1103652

PATIENT
  Age: 31 Year
  Sex: Female

DRUGS (1)
  1. LEVONORGESTREL AND ETHINYL ESTRADIOL, AND ETHINYL ESTRADIOL TABLETS [Suspect]
     Active Substance: ETHINYL ESTRADIOL\LEVONORGESTREL
     Indication: CONTRACEPTION
     Dosage: UNK
     Route: 048

REACTIONS (2)
  - Product odour abnormal [Not Recovered/Not Resolved]
  - Paraesthesia oral [Not Recovered/Not Resolved]

NARRATIVE: CASE EVENT DATE: 20191027
